FAERS Safety Report 7813489-2 (Version None)
Quarter: 2011Q4

REPORT INFORMATION
  Report Type: 
  Country: None (occurrence: None)
  Receive Date: 20111014
  Receipt Date: 20111012
  Transmission Date: 20120403
  Serious: No
  Sender: FDA-Public Use
  Company Number: US-BIOGENIDEC-2011BI037823

PATIENT
  Sex: Female

DRUGS (1)
  1. TYSABRI [Suspect]
     Indication: MULTIPLE SCLEROSIS
     Route: 042
     Dates: start: 20110825

REACTIONS (16)
  - VOMITING [None]
  - PAIN IN EXTREMITY [None]
  - COUGH [None]
  - HEADACHE [None]
  - ARTHRALGIA [None]
  - FATIGUE [None]
  - CHEST PAIN [None]
  - GASTROENTERITIS VIRAL [None]
  - POLLAKIURIA [None]
  - ASTHENIA [None]
  - URINARY TRACT INFECTION [None]
  - MOUTH ULCERATION [None]
  - DEPRESSION [None]
  - NAUSEA [None]
  - DIZZINESS [None]
  - TONGUE ULCERATION [None]
